FAERS Safety Report 6079703-1 (Version None)
Quarter: 2009Q1

REPORT INFORMATION
  Report Type: 
  Country: None (occurrence: None)
  Receive Date: 20090217
  Receipt Date: 20090211
  Transmission Date: 20090719
  Serious: Yes (Other)
  Sender: FDA-Public Use
  Company Number: FR-BRISTOL-MYERS SQUIBB COMPANY-14505267

PATIENT
  Age: 42 Year
  Sex: Male

DRUGS (5)
  1. COUMADIN [Suspect]
     Indication: PULMONARY EMBOLISM
     Route: 048
     Dates: start: 20081211, end: 20081229
  2. PREVISCAN [Interacting]
     Dates: start: 20081230, end: 20090113
  3. TEGRETOL [Interacting]
     Dates: start: 20060601
  4. GARDENAL [Interacting]
     Dosage: GARDENAL 100MG FORM = TABS. 1 DOSAGE FORM= 1 TABLET.
     Dates: start: 20051001
  5. INNOHEP [Concomitant]
     Indication: PULMONARY EMBOLISM
     Dosage: INNOHEP 14000 IU ANTIXA/0.7ML 1 DOSAGEFORM = 1 SC INJECTION
     Route: 058
     Dates: start: 20081211

REACTIONS (2)
  - CONVULSION [None]
  - DRUG INTERACTION [None]
